FAERS Safety Report 8693498 (Version 2)
Quarter: 2013Q2

REPORT INFORMATION
  Report Type: Spontaneous
  Country: DE (occurrence: CA)
  Receive Date: 20120730
  Receipt Date: 20130613
  Transmission Date: 20140414
  Serious: Yes (Death, Hospitalization)
  Sender: FDA-Public Use
  Company Number: CA-FRI-1000037365

PATIENT
  Age: 71 Year
  Sex: Male
  Weight: 118 kg

DRUGS (5)
  1. ROFLUMILAST [Suspect]
     Indication: CHRONIC OBSTRUCTIVE PULMONARY DISEASE
     Dosage: 500 MCG
     Route: 048
     Dates: start: 201205
  2. ADVAIR [Concomitant]
     Dates: start: 2005
  3. TIOTROPIUM [Concomitant]
     Dosage: 18 MCG
     Dates: start: 2005
  4. QVAR [Concomitant]
     Dates: start: 2010
  5. SALBUTAMOL [Concomitant]
     Dosage: AS REQUIRED

REACTIONS (4)
  - Pneumonia [Recovered/Resolved]
  - Transfusion [Unknown]
  - Dyspnoea [Unknown]
  - Death [Fatal]
